FAERS Safety Report 26160032 (Version 2)
Quarter: 2025Q4

REPORT INFORMATION
  Report Type: Report from Study
  Country: US (occurrence: US)
  Receive Date: 20251216
  Receipt Date: 20251218
  Transmission Date: 20260118
  Serious: Yes (Other)
  Sender: ABBVIE
  Company Number: US-ABBVIE-6587143

PATIENT
  Age: 62 Year
  Sex: Female

DRUGS (1)
  1. RESTASIS [Suspect]
     Active Substance: CYCLOSPORINE
     Indication: Product used for unknown indication
     Dosage: FREQUENCY TEXT: 1 DROP EACH EYE TWICE PER DAY; ROUTE OF ADMINISTRATION - OPHTHALMIC
     Route: 047

REACTIONS (3)
  - Brain operation [Unknown]
  - COVID-19 [Unknown]
  - Amnesia [Unknown]

NARRATIVE: CASE EVENT DATE: 20200101
